FAERS Safety Report 24692496 (Version 1)
Quarter: 2024Q4

REPORT INFORMATION
  Report Type: Spontaneous
  Country: US (occurrence: None)
  Receive Date: 20241203
  Receipt Date: 20241203
  Transmission Date: 20250115
  Serious: Yes (Hospitalization)
  Sender: Public
  Company Number: None

PATIENT
  Age: 57 Year
  Sex: Female
  Weight: 90 kg

DRUGS (1)
  1. EMPAGLIFLOZIN [Suspect]
     Active Substance: EMPAGLIFLOZIN
     Indication: Diabetes mellitus
     Dosage: FREQUENCY : DAILY;?
     Route: 048

REACTIONS (6)
  - Diabetic ketoacidosis [None]
  - Constipation [None]
  - Vomiting [None]
  - Abdominal pain [None]
  - Metabolic acidosis [None]
  - Therapy cessation [None]

NARRATIVE: CASE EVENT DATE: 20240702
